FAERS Safety Report 10171224 (Version 2)
Quarter: 2014Q2

REPORT INFORMATION
  Report Type: Spontaneous
  Country: US (occurrence: US)
  Receive Date: 20140514
  Receipt Date: 20140527
  Transmission Date: 20141212
  Serious: No
  Sender: FDA-Public Use
  Company Number: US-PFIZER INC-2014129170

PATIENT
  Age: 48 Year
  Sex: Female
  Weight: 83 kg

DRUGS (5)
  1. LYRICA [Suspect]
     Indication: PAIN IN EXTREMITY
     Dosage: 475 MG, 1X/DAY
     Route: 048
     Dates: start: 20140505, end: 20140506
  2. LYRICA [Suspect]
     Indication: PAIN IN EXTREMITY
     Dosage: 1 DF, 1X/DAY (ONE AT BEDTIME)
     Route: 048
     Dates: start: 20140512
  3. LYRICA [Suspect]
     Indication: BURNING SENSATION
  4. LYRICA [Suspect]
     Indication: PARAESTHESIA
  5. HYDROCHLOROTHIAZIDE [Concomitant]
     Indication: HYPERTENSION
     Dosage: 0.5 MG, 1X/DAY

REACTIONS (7)
  - Crying [Not Recovered/Not Resolved]
  - Dizziness [Not Recovered/Not Resolved]
  - Nausea [Not Recovered/Not Resolved]
  - Diarrhoea [Not Recovered/Not Resolved]
  - Fatigue [Not Recovered/Not Resolved]
  - Impaired work ability [Unknown]
  - Depression [Recovered/Resolved]
